FAERS Safety Report 6667162-7 (Version None)
Quarter: 2010Q2

REPORT INFORMATION
  Report Type: 
  Country: None (occurrence: None)
  Receive Date: 20100405
  Receipt Date: 20100325
  Transmission Date: 20101027
  Serious: Yes (Other)
  Sender: FDA-Public Use
  Company Number: CA-JNJFOC-20100308503

PATIENT
  Sex: Male
  Weight: 79 kg

DRUGS (1)
  1. REMICADE [Suspect]
     Indication: ANKYLOSING SPONDYLITIS
     Route: 042
     Dates: start: 20080701

REACTIONS (5)
  - HYPERSENSITIVITY [None]
  - JOINT SWELLING [None]
  - PHARYNGEAL OEDEMA [None]
  - SKIN WARM [None]
  - SWELLING [None]
